FAERS Safety Report 17626564 (Version 1)
Quarter: 2020Q2

REPORT INFORMATION
  Report Type: Spontaneous
  Country: CA (occurrence: CA)
  Receive Date: 20200405
  Receipt Date: 20200405
  Transmission Date: 20200713
  Serious: Yes (Hospitalization)
  Sender: FDA-Public Use
  Company Number: NVSC2020CA090101

PATIENT
  Sex: Male
  Weight: 92 kg

DRUGS (4)
  1. ONDANSETRON [Concomitant]
     Active Substance: ONDANSETRON
     Indication: PRODUCT USED FOR UNKNOWN INDICATION
     Dosage: UNK
     Route: 065
  2. OXALIPLATIN INJECTION [Suspect]
     Active Substance: OXALIPLATIN
     Indication: PALLIATIVE CARE
     Dosage: UNK UNK, Q2W
     Route: 051
  3. DEXAMETHASONE. [Concomitant]
     Active Substance: DEXAMETHASONE
     Indication: PRODUCT USED FOR UNKNOWN INDICATION
     Dosage: UNK
     Route: 065
  4. OXALIPLATIN INJECTION [Suspect]
     Active Substance: OXALIPLATIN
     Indication: CHEMOTHERAPY

REACTIONS (2)
  - Feeling cold [Unknown]
  - Chills [Unknown]
